FAERS Safety Report 17218099 (Version 1)
Quarter: 2020Q1

REPORT INFORMATION
  Report Type: Spontaneous
  Country: US (occurrence: US)
  Receive Date: 20191228
  Receipt Date: 20191228
  Transmission Date: 20200409
  Serious: No
  Sender: FDA-Public Use
  Company Number: None

PATIENT
  Age: 39 Year
  Sex: Male
  Weight: 96.75 kg

DRUGS (1)
  1. ZICAM COLD REMEDY MEDICATED FRUIT DROPS [Suspect]
     Active Substance: HOMEOPATHICS
     Route: 048

REACTIONS (2)
  - Unevaluable therapy [None]
  - Product label issue [None]

NARRATIVE: CASE EVENT DATE: 20191228
